FAERS Safety Report 13433399 (Version 1)
Quarter: 2017Q2

REPORT INFORMATION
  Report Type: Spontaneous
  Country: US (occurrence: US)
  Receive Date: 20170412
  Receipt Date: 20170412
  Transmission Date: 20170830
  Serious: No
  Sender: FDA-Public Use
  Company Number: US-TEVA-759276USA

PATIENT
  Sex: Female

DRUGS (1)
  1. COPAXONE [Suspect]
     Active Substance: GLATIRAMER ACETATE
     Indication: MULTIPLE SCLEROSIS
     Dosage: UNKNOWN FORM STRENGTH
     Route: 065

REACTIONS (6)
  - Adverse event [Unknown]
  - Dyspnoea [Unknown]
  - Heart rate increased [Unknown]
  - Injection site reaction [Unknown]
  - Feeling hot [Unknown]
  - Malaise [Unknown]
